FAERS Safety Report 5001353-6 (Version None)
Quarter: 2006Q2

REPORT INFORMATION
  Report Type: 
  Country: None (occurrence: None)
  Receive Date: 20060512
  Receipt Date: 20060503
  Transmission Date: 20061013
  Serious: Yes (Hospitalization, Disabling)
  Sender: FDA-Public Use
  Company Number: US-MERCK-0605USA00825

PATIENT
  Age: 55 Year
  Sex: Male
  Weight: 93 kg

DRUGS (13)
  1. VIOXX [Suspect]
     Indication: ARTHRITIS
     Route: 048
  2. VIOXX [Suspect]
     Route: 048
  3. ZOCOR [Concomitant]
     Route: 048
  4. K-DUR 10 [Concomitant]
     Route: 065
  5. CELEXA [Concomitant]
     Route: 065
  6. LOTENSIN [Concomitant]
     Route: 065
  7. COZAAR [Concomitant]
     Route: 048
  8. POTASSIUM (UNSPECIFIED) [Concomitant]
     Route: 065
  9. GLUCOPHAGE [Concomitant]
     Route: 065
  10. NOVOLIN [Concomitant]
     Route: 065
  11. LABETALOL HYDROCHLORIDE [Concomitant]
     Route: 065
  12. NORVASC [Concomitant]
     Route: 065
  13. ASPIRIN [Concomitant]
     Route: 065

REACTIONS (4)
  - BLOOD PRESSURE INADEQUATELY CONTROLLED [None]
  - CARPAL TUNNEL SYNDROME [None]
  - CEREBROVASCULAR ACCIDENT [None]
  - DIABETES MELLITUS [None]
